FAERS Safety Report 18325717 (Version 1)
Quarter: 2020Q3

REPORT INFORMATION
  Report Type: Spontaneous
  Country: US (occurrence: US)
  Receive Date: 20200929
  Receipt Date: 20200929
  Transmission Date: 20201103
  Serious: Yes (Hospitalization, Other)
  Sender: FDA-Public Use
  Company Number: US-PFIZER INC-2020373366

PATIENT
  Age: 74 Year
  Sex: Male
  Weight: 117.93 kg

DRUGS (1)
  1. LYRICA [Suspect]
     Active Substance: PREGABALIN
     Indication: NEUROPATHY PERIPHERAL
     Dosage: 100 MG, 3X/DAY
     Route: 048
     Dates: start: 2018

REACTIONS (6)
  - Dyspnoea [Unknown]
  - Oxygen saturation decreased [Unknown]
  - Product dose omission issue [Unknown]
  - Peripheral coldness [Unknown]
  - Weight decreased [Unknown]
  - COVID-19 [Unknown]

NARRATIVE: CASE EVENT DATE: 2020
